FAERS Safety Report 15739715 (Version 3)
Quarter: 2018Q4

REPORT INFORMATION
  Report Type: Spontaneous
  Country: US (occurrence: US)
  Receive Date: 20181219
  Receipt Date: 20181227
  Transmission Date: 20190205
  Serious: Yes (Other)
  Sender: FDA-Public Use
  Company Number: US-PFIZER INC-2018517633

PATIENT
  Age: 87 Year
  Sex: Female

DRUGS (1)
  1. METHYLPREDNISOLONE ACETATE. [Suspect]
     Active Substance: METHYLPREDNISOLONE ACETATE
     Indication: CYSTOID MACULAR OEDEMA
     Dosage: 0.75 ML, SINGLE
     Route: 057

REACTIONS (1)
  - Conjunctival ulcer [Recovering/Resolving]
